FAERS Safety Report 13369293 (Version 1)
Quarter: 2017Q1

REPORT INFORMATION
  Report Type: Report from Study
  Country: BR (occurrence: BR)
  Receive Date: 20170324
  Receipt Date: 20170324
  Transmission Date: 20170429
  Serious: Yes (Death)
  Sender: FDA-Public Use
  Company Number: PHHY2017BR044708

PATIENT
  Sex: Male

DRUGS (2)
  1. DIOVAN HCT [Suspect]
     Active Substance: HYDROCHLOROTHIAZIDE\VALSARTAN
     Indication: PRODUCT USED FOR UNKNOWN INDICATION
     Dosage: 1 DF (HYDROCHLOROTHIAZDE 12.5/VALSARTAN 160 MG)
     Route: 065
  2. DIOVAN HCT [Suspect]
     Active Substance: HYDROCHLOROTHIAZIDE\VALSARTAN
     Dosage: 1 DF (HYDROCHLOROTHIAZDE 12.5/VALSARTAN 320MG)
     Route: 065

REACTIONS (3)
  - Hypertension [Fatal]
  - Ischaemic cardiomyopathy [Fatal]
  - Acute myocardial infarction [Fatal]
